FAERS Safety Report 6336247-7 (Version None)
Quarter: 2009Q3

REPORT INFORMATION
  Report Type: 
  Country: None (occurrence: None)
  Receive Date: 20090901
  Receipt Date: 20090820
  Transmission Date: 20100115
  Serious: Yes (Hospitalization)
  Sender: FDA-Public Use
  Company Number: FR-PFIZER INC-2009257287

PATIENT
  Age: 81 Year

DRUGS (3)
  1. TRIFLUCAN [Suspect]
     Indication: FUNGAL INFECTION
     Dosage: UNK
     Route: 048
     Dates: start: 20090404, end: 20090420
  2. AMLODIPINE [Concomitant]
     Dosage: UNK
  3. PREVISCAN [Concomitant]
     Dosage: UNK

REACTIONS (1)
  - TOXIC SKIN ERUPTION [None]
